FAERS Safety Report 5579970-4 (Version None)
Quarter: 2007Q4

REPORT INFORMATION
  Report Type: 
  Country: None (occurrence: None)
  Receive Date: 20071226
  Receipt Date: 20071212
  Transmission Date: 20080405
  Serious: Yes (Other)
  Sender: FDA-Public Use
  Company Number: CHNY2007JP04047

PATIENT
  Age: 65 Year
  Sex: Male

DRUGS (5)
  1. PURSENNIDE (NCH) (SENNA GLYCOSIDES (CA SALTS OF PURIFIED SENNA EXTRACT [Suspect]
     Dosage: ORAL
     Route: 048
     Dates: start: 20071204, end: 20071210
  2. AMPICILLIN [Suspect]
  3. PLAVIX [Suspect]
     Dosage: ORAL
     Route: 048
  4. GLYCORAN (METFORMIN HYDROCHLORIDE) [Concomitant]
  5. ALLELOCK (OLOPATADINE HYDROCHLORIDE) [Concomitant]

REACTIONS (1)
  - RASH GENERALISED [None]
